FAERS Safety Report 13666681 (Version 1)
Quarter: 2017Q2

REPORT INFORMATION
  Report Type: Spontaneous
  Country: US (occurrence: US)
  Receive Date: 20170619
  Receipt Date: 20170619
  Transmission Date: 20170830
  Serious: Yes (Other)
  Sender: FDA-Public Use
  Company Number: US-ROCHE-1432485

PATIENT
  Sex: Female

DRUGS (2)
  1. XELODA [Suspect]
     Active Substance: CAPECITABINE
     Indication: NEOPLASM MALIGNANT
     Dosage: 14 DAYS ON 7 DAYS OFF, 3 TAB?1500 MG AM, 1000 MG PM
     Route: 048
     Dates: start: 20140627
  2. XELODA [Suspect]
     Active Substance: CAPECITABINE
     Dosage: 14 DAYS ON 7 DAYS OFF
     Route: 048
     Dates: start: 20140627

REACTIONS (12)
  - Blood potassium decreased [Recovering/Resolving]
  - Dyspepsia [Unknown]
  - Neuropathy peripheral [Unknown]
  - Blister [Not Recovered/Not Resolved]
  - Pain in extremity [Not Recovered/Not Resolved]
  - Nausea [Unknown]
  - Asthenia [Unknown]
  - Hot flush [Not Recovered/Not Resolved]
  - Diarrhoea [Recovering/Resolving]
  - Fatigue [Unknown]
  - Decreased appetite [Unknown]
  - Hypoaesthesia [Unknown]
